FAERS Safety Report 7674217-7 (Version None)
Quarter: 2011Q3

REPORT INFORMATION
  Report Type: 
  Country: None (occurrence: None)
  Receive Date: 20110810
  Receipt Date: 20110802
  Transmission Date: 20111222
  Serious: Yes (Hospitalization, Other)
  Sender: FDA-Public Use
  Company Number: US-BAYER-2011-016827

PATIENT
  Age: 30 Year
  Sex: Female
  Weight: 76 kg

DRUGS (8)
  1. YASMIN [Suspect]
     Indication: PRODUCT USED FOR UNKNOWN INDICATION
     Dates: start: 20020101, end: 20030101
  2. ADVAIR DISKUS 100/50 [Concomitant]
     Indication: DYSPNOEA
  3. SINGULAIR [Concomitant]
     Indication: DYSPNOEA
     Dosage: UNK
     Dates: start: 20031001
  4. ADVAIR DISKUS 100/50 [Concomitant]
     Indication: ASTHMA
     Dosage: UNK
     Dates: start: 20031001
  5. NAPROXEN SODIUM AND PSEUDOEPHEDRINE HYDROCHLORIDE [Concomitant]
     Dosage: UNK
     Dates: start: 19910101
  6. SINGULAIR [Concomitant]
     Indication: ASTHMA
  7. NAPROXEN (ALEVE) [Concomitant]
     Dosage: UNK
     Dates: start: 19910101
  8. LEVAQUIN [Concomitant]
     Dosage: UNK
     Dates: start: 20030901

REACTIONS (3)
  - INJURY [None]
  - PULMONARY EMBOLISM [None]
  - PAIN [None]
